FAERS Safety Report 4652180-0 (Version None)
Quarter: 2005Q2

REPORT INFORMATION
  Report Type: 
  Country: None (occurrence: None)
  Receive Date: 20050504
  Receipt Date: 20050422
  Transmission Date: 20051028
  Serious: Yes (Death, Hospitalization, Other)
  Sender: FDA-Public Use
  Company Number: US-BRISTOL-MYERS SQUIBB COMPANY-12943916

PATIENT
  Age: 69 Year
  Sex: Male
  Weight: 52 kg

DRUGS (5)
  1. AVAPRO [Suspect]
     Indication: HYPERTENSION
     Dosage: 150 MG IN 1998, INCREASED TO 300 MG IN 2000
     Dates: start: 19980101
  2. MARINOL [Concomitant]
  3. REMERON [Concomitant]
  4. PRAVACHOL [Concomitant]
  5. IRON SUPPLEMENT [Concomitant]

REACTIONS (7)
  - ANOREXIA [None]
  - BLOOD SODIUM DECREASED [None]
  - DECREASED APPETITE [None]
  - FAILURE TO THRIVE [None]
  - IRON DEFICIENCY ANAEMIA [None]
  - PNEUMONIA ASPIRATION [None]
  - WEIGHT DECREASED [None]
